FAERS Safety Report 6089435-1 (Version None)
Quarter: 2009Q1

REPORT INFORMATION
  Report Type: 
  Country: None (occurrence: None)
  Receive Date: 20090224
  Receipt Date: 20090217
  Transmission Date: 20090719
  Serious: Yes (Other)
  Sender: FDA-Public Use
  Company Number: US-ELI_LILLY_AND_COMPANY-US200902004144

PATIENT
  Sex: Female

DRUGS (4)
  1. HUMALOG [Suspect]
     Dosage: 4 U, UNK
  2. GLIPIZIDE [Concomitant]
     Dosage: 10 MG, EACH MORNING
  3. GLIPIZIDE [Concomitant]
     Dosage: 5 MG, EACH EVENING
  4. METFORMIN [Concomitant]
     Dosage: 1000 MG, 2/D

REACTIONS (3)
  - BLOOD GLUCOSE INCREASED [None]
  - CONVULSION [None]
  - DIABETIC COMA [None]
